FAERS Safety Report 8902549 (Version 2)
Quarter: 2013Q1

REPORT INFORMATION
  Report Type: Spontaneous
  Country: US (occurrence: US)
  Receive Date: 20121112
  Receipt Date: 20130122
  Transmission Date: 20140127
  Serious: Yes (Hospitalization)
  Sender: FDA-Public Use
  Company Number: US-PFIZER INC-2012280360

PATIENT
  Age: 45 Year
  Sex: Female
  Weight: 43.08 kg

DRUGS (6)
  1. SUTENT [Suspect]
     Indication: PANCREATIC NEOPLASM
     Dosage: 12.5 MG, 1X/DAY
     Route: 048
     Dates: start: 20121002, end: 201210
  2. SUTENT [Suspect]
     Indication: NEUROENDOCRINE TUMOUR
     Dosage: 25 MG, 1X/DAY
     Route: 048
     Dates: start: 201210, end: 201210
  3. SUTENT [Suspect]
     Dosage: 37.5 MG, UNK
  4. SUTENT [Suspect]
     Dosage: 25 MG, ALTERNATE DAY
     Dates: end: 20121211
  5. MEGESTROL [Concomitant]
     Dosage: 40 MG, UNK
  6. PROGRAF [Concomitant]
     Indication: POSTOPERATIVE CARE
     Dosage: 1 MG, UNK

REACTIONS (4)
  - Nausea [Recovered/Resolved]
  - Vomiting [Recovered/Resolved]
  - Dehydration [Unknown]
  - Asthenia [Unknown]
